FAERS Safety Report 12561338 (Version 2)
Quarter: 2016Q4

REPORT INFORMATION
  Report Type: Spontaneous
  Country: US (occurrence: US)
  Receive Date: 20160715
  Receipt Date: 20161024
  Transmission Date: 20170207
  Serious: Yes (Other)
  Sender: FDA-Public Use
  Company Number: US-BAYER-2016-138058

PATIENT
  Age: 36 Year
  Sex: Female
  Weight: 77.98 kg

DRUGS (1)
  1. MIRENA [Suspect]
     Active Substance: LEVONORGESTREL
     Indication: CONTRACEPTION
     Dosage: 20 UNK,
     Route: 015
     Dates: start: 20110720

REACTIONS (2)
  - Device difficult to use [None]
  - Embedded device [Recovered/Resolved]

NARRATIVE: CASE EVENT DATE: 20160711
